FAERS Safety Report 6912710-2 (Version None)
Quarter: 2010Q3

REPORT INFORMATION
  Report Type: 
  Country: None (occurrence: None)
  Receive Date: 20100806
  Receipt Date: 20081015
  Transmission Date: 20110219
  Serious: No
  Sender: FDA-Public Use
  Company Number: US-PFIZER INC-2008082807

PATIENT
  Sex: Female
  Weight: 68.2 kg

DRUGS (4)
  1. DETROL LA [Suspect]
     Indication: HYPERTONIC BLADDER
     Dates: start: 20080925
  2. LEVOTHYROXINE [Concomitant]
     Indication: THYROID DISORDER
  3. ESTROGENS [Concomitant]
  4. OXYBUTYNIN CHLORIDE [Concomitant]

REACTIONS (1)
  - DRUG INEFFECTIVE [None]
